FAERS Safety Report 6448684-0 (Version None)
Quarter: 2009Q4

REPORT INFORMATION
  Report Type: 
  Country: None (occurrence: None)
  Receive Date: 20091120
  Receipt Date: 20090804
  Transmission Date: 20100525
  Serious: No
  Sender: FDA-Public Use
  Company Number: US-KINGPHARMUSA00001-K200900927

PATIENT
  Age: 87 Year
  Sex: Female
  Weight: 68.027 kg

DRUGS (18)
  1. FLECTOR [Suspect]
     Indication: ARTHRALGIA
     Dosage: 1 PATCH, PRN
     Route: 061
     Dates: start: 20090729, end: 20090731
  2. ATENOLOL [Concomitant]
     Indication: HYPERTENSION
     Dosage: UNK
  3. WELLBUTRIN [Concomitant]
     Dosage: UNK
  4. NORVASC [Concomitant]
     Indication: HYPERTENSION
     Dosage: UNK
  5. PRILOSEC [Concomitant]
     Indication: REFLUX GASTRITIS
     Dosage: UNK
  6. CELEBREX [Concomitant]
     Indication: ARTHRALGIA
     Dosage: UNK
  7. MULTI-VITAMIN [Concomitant]
     Dosage: UNK
  8. CALCIUM [Concomitant]
     Dosage: UNK
  9. ASCORBIC ACID [Concomitant]
     Dosage: UNK
  10. K-DUR [Concomitant]
     Dosage: 5 MG, UNK
  11. PREDNISONE [Concomitant]
     Indication: ARTHRALGIA
     Dosage: UNK
  12. PREDNISONE [Concomitant]
     Indication: DECREASED APPETITE
  13. FLAXSEED OIL [Concomitant]
     Dosage: UNK
  14. HYDROCHLOROTHIAZIDE [Concomitant]
     Indication: HYPERTENSION
     Dosage: UNK
  15. LORTAB [Concomitant]
     Indication: ARTHRALGIA
     Dosage: UNK
  16. NAMENDA [Concomitant]
     Indication: DEMENTIA
     Dosage: UNK
  17. ASPIRIN [Concomitant]
     Dosage: UNK
  18. FEOSOL [Concomitant]
     Indication: MINERAL SUPPLEMENTATION
     Dosage: UNK

REACTIONS (2)
  - APPLICATION SITE ERYTHEMA [None]
  - VASCULAR INJURY [None]
